FAERS Safety Report 16759414 (Version 2)
Quarter: 2019Q3

REPORT INFORMATION
  Report Type: Spontaneous
  Country: US (occurrence: US)
  Receive Date: 20190830
  Receipt Date: 20190910
  Transmission Date: 20191005
  Serious: Yes (Hospitalization)
  Sender: FDA-Public Use
  Company Number: US-PFIZER INC-2019355173

PATIENT
  Age: 74 Year
  Sex: Female
  Weight: 94.8 kg

DRUGS (2)
  1. TIKOSYN [Suspect]
     Active Substance: DOFETILIDE
     Indication: ATRIAL FIBRILLATION
     Dosage: 250 UG, 2X/DAY
     Route: 048
     Dates: start: 20180707, end: 20190711
  2. DILTIAZEM. [Concomitant]
     Active Substance: DILTIAZEM
     Indication: HEART RATE IRREGULAR
     Dosage: 360 MG, 1X/DAY
     Dates: start: 201908

REACTIONS (1)
  - No adverse event [Recovering/Resolving]

NARRATIVE: CASE EVENT DATE: 2019
